FAERS Safety Report 21920485 (Version 7)
Quarter: 2024Q3

REPORT INFORMATION
  Report Type: Report from Study
  Country: US (occurrence: US)
  Receive Date: 20230127
  Receipt Date: 20240930
  Transmission Date: 20241017
  Serious: No
  Sender: NOVARTIS
  Company Number: US-002147023-NVSC2023US014549

PATIENT
  Sex: Female

DRUGS (3)
  1. COSENTYX [Suspect]
     Active Substance: SECUKINUMAB
     Indication: Psoriatic arthropathy
     Dosage: 150 MG, QMO
     Route: 058
  2. COSENTYX [Suspect]
     Active Substance: SECUKINUMAB
     Indication: Psoriasis
     Dosage: UNK (FEB DOSE)
     Route: 065
  3. COSENTYX [Suspect]
     Active Substance: SECUKINUMAB
     Dosage: UNK (TOOK DOSE AROUND 10 PM LAST WEEK)
     Route: 065

REACTIONS (8)
  - Feeling abnormal [Unknown]
  - Paraesthesia [Unknown]
  - Presyncope [Unknown]
  - Headache [Not Recovered/Not Resolved]
  - Head discomfort [Unknown]
  - Musculoskeletal chest pain [Unknown]
  - Malaise [Unknown]
  - Product distribution issue [Unknown]
